FAERS Safety Report 5228072-5 (Version None)
Quarter: 2007Q1

REPORT INFORMATION
  Report Type: 
  Country: None (occurrence: None)
  Receive Date: 20061201
  Receipt Date: 20061011
  Transmission Date: 20070707
  Serious: No
  Sender: FDA-Public Use
  Company Number: US200610002150

PATIENT
  Age: 62 Year
  Sex: Female

DRUGS (7)
  1. CYMBALTA [Suspect]
     Indication: DEPRESSION
     Dosage: 60 MG, ORAL
     Route: 048
     Dates: start: 20060801
  2. LEVOXYL [Concomitant]
  3. PREGABLAIN (PREGABALIN) [Concomitant]
  4. INSULIN [Concomitant]
  5. MULTI-VITAMINS [Concomitant]
  6. SELENIUM (SELENIUM) [Concomitant]
  7. VITAMIN E [Concomitant]

REACTIONS (10)
  - BURSITIS [None]
  - CRYING [None]
  - FATIGUE [None]
  - HYPERVENTILATION [None]
  - NIGHTMARE [None]
  - PAIN IN EXTREMITY [None]
  - RESTLESSNESS [None]
  - SCREAMING [None]
  - SLEEP DISORDER [None]
  - TENDONITIS [None]
